FAERS Safety Report 7642852-8 (Version None)
Quarter: 2011Q3

REPORT INFORMATION
  Report Type: 
  Country: None (occurrence: None)
  Receive Date: 20110728
  Receipt Date: 20110727
  Transmission Date: 20111222
  Serious: Yes (Other)
  Sender: FDA-Public Use
  Company Number: JP-PFIZER INC-2011171170

PATIENT
  Age: 46 Year
  Sex: Male

DRUGS (5)
  1. ROHYPNOL [Concomitant]
  2. TOLEDOMIN [Concomitant]
  3. LIPITOR [Suspect]
     Dosage: 10 MG, UNK
     Route: 048
     Dates: start: 20100601
  4. DEPAS [Concomitant]
  5. ANAFRANIL [Concomitant]

REACTIONS (2)
  - APPENDICITIS [None]
  - WEIGHT DECREASED [None]
